FAERS Safety Report 8105191-7 (Version None)
Quarter: 2012Q1

REPORT INFORMATION
  Report Type: 
  Country: None (occurrence: None)
  Receive Date: 20120201
  Receipt Date: 20120124
  Transmission Date: 20120608
  Serious: Yes (Life-Threatening, Hospitalization)
  Sender: FDA-Public Use
  Company Number: US-MILLENNIUM PHARMACEUTICALS, INC.-2011-05640

PATIENT
  Sex: Female
  Weight: 33.2 kg

DRUGS (5)
  1. ETOPOSIDE [Suspect]
     Indication: ACUTE MYELOID LEUKAEMIA
     Dosage: 100 MG/M2, CYCLIC
     Route: 042
     Dates: end: 20111028
  2. VELCADE [Suspect]
     Indication: ACUTE MYELOID LEUKAEMIA
     Dosage: 1.3 MG/M2, CYCLIC
     Route: 040
     Dates: start: 20111021, end: 20111030
  3. DAUNORUBICIN HYDROCHLORIDE [Suspect]
     Indication: ACUTE MYELOID LEUKAEMIA
     Dosage: 50 MG/M2, CYCLIC
     Route: 042
     Dates: start: 20111021, end: 20111026
  4. CYTARABINE [Suspect]
     Indication: ACUTE MYELOID LEUKAEMIA
     Dosage: 100 MG/M2, CYCLIC
     Route: 042
     Dates: start: 20111021, end: 20111031
  5. CYTARABINE [Suspect]
     Dosage: 70 MG, UNK
     Route: 037
     Dates: start: 20111019

REACTIONS (16)
  - AGITATION [None]
  - BRAIN OEDEMA [None]
  - SOMNOLENCE [None]
  - DIZZINESS [None]
  - CONVULSION [None]
  - PARAESTHESIA [None]
  - HEADACHE [None]
  - POSTERIOR REVERSIBLE ENCEPHALOPATHY SYNDROME [None]
  - ENCEPHALOPATHY [None]
  - DEPRESSED LEVEL OF CONSCIOUSNESS [None]
  - HYPERTENSION [None]
  - PERIPHERAL SENSORY NEUROPATHY [None]
  - DYSAESTHESIA [None]
  - HYPERSOMNIA [None]
  - NEURALGIA [None]
  - HYPONATRAEMIA [None]
